FAERS Safety Report 4559597-3 (Version None)
Quarter: 2005Q1

REPORT INFORMATION
  Report Type: 
  Country: None (occurrence: None)
  Receive Date: 20050113
  Receipt Date: 20040514
  Transmission Date: 20050727
  Serious: Yes (Death)
  Sender: FDA-Public Use
  Company Number: 2004214077JP

PATIENT
  Sex: 0

DRUGS (1)
  1. HALCION [Suspect]

REACTIONS (2)
  - DEATH [None]
  - OVERDOSE [None]
